FAERS Safety Report 19120622 (Version 1)
Quarter: 2021Q2

REPORT INFORMATION
  Report Type: Spontaneous
  Country: US (occurrence: US)
  Receive Date: 20210412
  Receipt Date: 20210412
  Transmission Date: 20210717
  Serious: Yes (Hospitalization)
  Sender: FDA-Public Use
  Company Number: None

PATIENT
  Age: 78 Year
  Sex: Male
  Weight: 84 kg

DRUGS (1)
  1. PREDNISONE (PREDNISONE 20MG TAB) [Suspect]
     Active Substance: PREDNISONE
     Indication: POLYMYALGIA RHEUMATICA
     Route: 048
     Dates: start: 20210115, end: 20210118

REACTIONS (4)
  - Mental status changes [None]
  - Delirium [None]
  - Agitation [None]
  - Substance-induced psychotic disorder [None]

NARRATIVE: CASE EVENT DATE: 20210118
